FAERS Safety Report 13542092 (Version 1)
Quarter: 2017Q2

REPORT INFORMATION
  Report Type: Report from Study
  Country: US (occurrence: US)
  Receive Date: 20170512
  Receipt Date: 20170512
  Transmission Date: 20170830
  Serious: No
  Sender: FDA-Public Use
  Company Number: PHEH2017US014030

PATIENT
  Sex: Female

DRUGS (2)
  1. EXEMESTANE. [Concomitant]
     Active Substance: EXEMESTANE
     Indication: PRODUCT USED FOR UNKNOWN INDICATION
     Dosage: 25 MG, UNK
     Route: 065
  2. AFINITOR [Suspect]
     Active Substance: EVEROLIMUS
     Indication: PRODUCT USED FOR UNKNOWN INDICATION
     Dosage: 5 MG, QD
     Route: 065

REACTIONS (11)
  - Dizziness [Unknown]
  - Disorientation [Unknown]
  - Malaise [Unknown]
  - Fatigue [Unknown]
  - Rheumatic disorder [Unknown]
  - Eye disorder [Unknown]
  - Hypokinesia [Unknown]
  - Arthropathy [Unknown]
  - Fear [Unknown]
  - Hot flush [Unknown]
  - Feeling abnormal [Unknown]
